FAERS Safety Report 23839972 (Version 1)
Quarter: 2024Q2

REPORT INFORMATION
  Report Type: Other
  Country: CA (occurrence: CA)
  Receive Date: 20240510
  Receipt Date: 20240510
  Transmission Date: 20240717
  Serious: Yes (Hospitalization)
  Sender: FDA-Public Use
  Company Number: CA-BIOCON BIOLOGICS LIMITED-BBL2024003102

PATIENT

DRUGS (1)
  1. OGIVRI [Suspect]
     Active Substance: TRASTUZUMAB-DKST
     Indication: Endometrial cancer stage IV
     Dosage: UNK, (POWDER FOR SOLUTION INTRAVENOUS)
     Route: 065

REACTIONS (1)
  - Hospitalisation [Recovered/Resolved]
